FAERS Safety Report 9198689 (Version 4)
Quarter: 2013Q2

REPORT INFORMATION
  Report Type: Spontaneous
  Country: US (occurrence: US)
  Receive Date: 20130329
  Receipt Date: 20130506
  Transmission Date: 20140414
  Serious: Yes (Hospitalization, Other)
  Sender: FDA-Public Use
  Company Number: US-JNJFOC-20130314004

PATIENT
  Age: 78 Year
  Sex: Male

DRUGS (2)
  1. XARELTO [Suspect]
     Indication: DEEP VEIN THROMBOSIS
     Route: 048
     Dates: start: 201302, end: 2013
  2. XARELTO [Suspect]
     Indication: DEEP VEIN THROMBOSIS
     Route: 048

REACTIONS (5)
  - Gastrointestinal haemorrhage [Unknown]
  - Peripheral artery thrombosis [Recovering/Resolving]
  - Diverticulitis [Unknown]
  - Haemoglobin decreased [Unknown]
  - Atrial fibrillation [Unknown]
